FAERS Safety Report 7802796-5 (Version None)
Quarter: 2011Q4

REPORT INFORMATION
  Report Type: 
  Country: None (occurrence: None)
  Receive Date: 20111007
  Receipt Date: 20110923
  Transmission Date: 20120403
  Serious: Yes (Hospitalization)
  Sender: FDA-Public Use
  Company Number: FR-PFIZER INC-HQWYE554205MAY05

PATIENT
  Age: 30 Year
  Sex: Male

DRUGS (11)
  1. PANTOPRAZOLE [Suspect]
     Indication: COLITIS
     Dosage: 20.0 MG, 1X/DAY
     Route: 048
     Dates: start: 20050326, end: 20050401
  2. PANTOPRAZOLE [Suspect]
     Indication: GASTROINTESTINAL INFLAMMATION
  3. BACTRIM DS [Suspect]
     Indication: COLITIS
     Dosage: 1 TIME(S) PER DAY 2 DF
     Route: 048
     Dates: start: 20050326, end: 20050401
  4. PANFUREX [Concomitant]
     Dosage: UNK
     Route: 048
     Dates: start: 20050325, end: 20050326
  5. TRANSACALM [Suspect]
     Indication: GASTROINTESTINAL INFLAMMATION
  6. BACTRIM DS [Suspect]
     Indication: GASTROINTESTINAL INFLAMMATION
  7. CARBOLEVURE [Concomitant]
     Dosage: UNK
     Route: 048
     Dates: start: 20050325, end: 20050326
  8. TRANSACALM [Suspect]
     Indication: COLITIS
     Dosage: 200.0 MG, 3X/DAY
     Route: 048
     Dates: start: 20050326, end: 20050401
  9. ACETAMINOPHEN [Concomitant]
     Dosage: UNK
     Route: 048
     Dates: start: 20050325
  10. FLIXONASE [Concomitant]
     Route: 045
  11. ULTRA LEVURA [Concomitant]
     Dosage: UNK
     Route: 048
     Dates: start: 20050326

REACTIONS (4)
  - RASH MACULO-PAPULAR [None]
  - SKIN LESION [None]
  - PURPURA [None]
  - RASH PRURITIC [None]
